FAERS Safety Report 13622503 (Version 1)
Quarter: 2017Q2

REPORT INFORMATION
  Report Type: Spontaneous
  Country: IN (occurrence: IN)
  Receive Date: 20170607
  Receipt Date: 20170607
  Transmission Date: 20170830
  Serious: Yes (Death, Other)
  Sender: FDA-Public Use
  Company Number: IN-EDENBRIDGE PHARMACEUTICALS, LLC-IN-2017EDE000063

PATIENT
  Sex: Female

DRUGS (3)
  1. AZATHIOPRIN [Suspect]
     Active Substance: AZATHIOPRINE
     Indication: IMMUNOSUPPRESSION
     Dosage: UNK
  2. PREDNISOLONE SODIUM PHOSPHATE. [Suspect]
     Active Substance: PREDNISOLONE SODIUM PHOSPHATE
     Indication: IMMUNOSUPPRESSION
     Dosage: UNK
  3. TACROLIMUS ACCORD [Suspect]
     Active Substance: TACROLIMUS
     Indication: IMMUNOSUPPRESSION
     Dosage: UNK

REACTIONS (5)
  - Mucormycosis [Unknown]
  - Infective aneurysm [Fatal]
  - Cavernous sinus thrombosis [Unknown]
  - Cellulitis orbital [Unknown]
  - Meningitis cryptococcal [Fatal]
